FAERS Safety Report 7383191-2 (Version None)
Quarter: 2011Q1

REPORT INFORMATION
  Report Type: 
  Country: None (occurrence: None)
  Receive Date: 20110325
  Receipt Date: 20110325
  Transmission Date: 20110831
  Serious: Yes (Hospitalization)
  Sender: FDA-Public Use
  Company Number: None

PATIENT
  Age: 43 Year
  Sex: Female
  Weight: 104 kg

DRUGS (10)
  1. FLONASE [Concomitant]
  2. ESTROGEN - MONONESSA [Suspect]
     Indication: UTERINE LEIOMYOMA
     Dosage: 1 TAB DAILY PO RECENT X 6 MOS
     Route: 048
  3. MICARDIS [Concomitant]
  4. VERAPAMIL [Concomitant]
  5. POLYSACCHRIDE IRON [Concomitant]
  6. AUGMENTIN [Concomitant]
  7. AMLODIPINE [Concomitant]
  8. ZYRTEC [Concomitant]
  9. LASIX [Concomitant]
  10. IBUPROFEN [Concomitant]

REACTIONS (4)
  - HYSTERECTOMY [None]
  - HYPOKALAEMIA [None]
  - DEEP VEIN THROMBOSIS [None]
  - PULMONARY EMBOLISM [None]
